FAERS Safety Report 5891435-9 (Version None)
Quarter: 2008Q3

REPORT INFORMATION
  Report Type: 
  Country: None (occurrence: None)
  Receive Date: 20080916
  Receipt Date: 20080916
  Transmission Date: 20090109
  Serious: Yes (Hospitalization)
  Sender: FDA-Public Use
  Company Number: None

PATIENT
  Age: 79 Year
  Sex: Female
  Weight: 59 kg

DRUGS (7)
  1. GLYBURIDE AND METFORMIN HCL [Suspect]
     Indication: DIABETES MELLITUS
     Dosage: TWO BID PO (DURATION: LAST FEW DAYS)
     Route: 048
  2. ASPIRIN [Concomitant]
  3. COLACE [Concomitant]
  4. LIPITOR [Concomitant]
  5. VASOTEC [Concomitant]
  6. CELEBREX [Concomitant]
  7. DITROPAN [Concomitant]

REACTIONS (2)
  - INCORRECT DOSE ADMINISTERED [None]
  - MEDICATION ERROR [None]
